FAERS Safety Report 24066014 (Version 1)
Quarter: 2024Q3

REPORT INFORMATION
  Report Type: Spontaneous
  Country: US (occurrence: None)
  Receive Date: 20240709
  Receipt Date: 20240709
  Transmission Date: 20241017
  Serious: Yes (Hospitalization)
  Sender: Public
  Company Number: None

PATIENT
  Sex: Female

DRUGS (6)
  1. EPOPROSTENOL [Suspect]
     Active Substance: EPOPROSTENOL
     Indication: Pulmonary embolism
     Dosage: 15NG/KG/MIN CONTINUOUS IV?
     Route: 042
     Dates: start: 202308
  2. HEPARIN [Concomitant]
  3. SODIUM CHLORIDE [Concomitant]
     Active Substance: SODIUM CHLORIDE
  4. DEVICE [Suspect]
     Active Substance: DEVICE
  5. NORMAL SALINE FLUSH [Concomitant]
  6. OPSUMIT [Concomitant]
     Active Substance: MACITENTAN

REACTIONS (2)
  - Cardiac failure acute [None]
  - Pulmonary hypertension [None]
